FAERS Safety Report 9989487 (Version 2)
Quarter: 2014Q1

REPORT INFORMATION
  Report Type: Report from Study
  Country: US (occurrence: US)
  Receive Date: 20140310
  Receipt Date: 20140310
  Transmission Date: 20141002
  Serious: No
  Sender: FDA-Public Use
  Company Number: US-ABBVIE-13P-163-1104613-00

PATIENT
  Age: 49 Year
  Sex: Female

DRUGS (5)
  1. HUMIRA [Suspect]
     Indication: COLITIS ULCERATIVE
     Dates: start: 20130315
  2. IMURAN [Concomitant]
     Indication: COLITIS ULCERATIVE
  3. LIALDA [Concomitant]
     Indication: COLITIS ULCERATIVE
  4. WELLBUTRIN [Concomitant]
     Indication: ANXIETY
  5. YAZ [Concomitant]
     Indication: CONTRACEPTION

REACTIONS (3)
  - Pain [Not Recovered/Not Resolved]
  - Gastrointestinal mucosal disorder [Not Recovered/Not Resolved]
  - Drug ineffective [Unknown]
